FAERS Safety Report 9075030 (Version 4)
Quarter: 2013Q2

REPORT INFORMATION
  Report Type: Spontaneous
  Country: US (occurrence: US)
  Receive Date: 20130129
  Receipt Date: 20130412
  Transmission Date: 20140414
  Serious: Yes (Hospitalization, Other)
  Sender: FDA-Public Use
  Company Number: US-BAYER-2013-011755

PATIENT
  Age: 70 Year
  Sex: Male
  Weight: 79.83 kg

DRUGS (27)
  1. XARELTO [Suspect]
     Indication: CEREBROVASCULAR ACCIDENT PROPHYLAXIS
     Dosage: 20 MG, QD
     Route: 048
     Dates: start: 20130103
  2. XARELTO [Suspect]
     Indication: ATRIAL FIBRILLATION
  3. ACETYLSALICYLIC ACID [Suspect]
     Indication: ATRIAL FIBRILLATION
     Dosage: 325 MG, UNK
     Route: 065
  4. LISINOPRIL [Concomitant]
     Indication: BLOOD PRESSURE ABNORMAL
     Dosage: 5 MG, QD
     Route: 048
  5. LISINOPRIL [Concomitant]
     Indication: HYPERTENSION
  6. CRESTOR [Concomitant]
     Indication: BLOOD CHOLESTEROL ABNORMAL
     Dosage: 10 MG, QD
     Route: 065
  7. CRESTOR [Concomitant]
     Indication: BLOOD CHOLESTEROL INCREASED
  8. DOXYCYCLINE [Concomitant]
     Indication: ROSACEA
     Dosage: 50 MG, QD
     Route: 065
     Dates: start: 20120328
  9. FISH OIL [Concomitant]
     Indication: NUTRITIONAL SUPPLEMENTATION
     Dosage: 840 MG, QD
     Route: 065
  10. FISH OIL [Concomitant]
     Indication: CARDIAC DISORDER
  11. FISH OIL [Concomitant]
     Indication: NUTRITIONAL SUPPLEMENTATION
  12. ECONAZOLE NITRATE [Concomitant]
     Indication: DERMATITIS CONTACT
     Route: 065
  13. ECONAZOLE NITRATE [Concomitant]
     Indication: DERMATITIS CONTACT
  14. ECONAZOLE NITRATE [Concomitant]
     Indication: DERMATITIS CONTACT
     Route: 065
  15. RYTHMOL [Concomitant]
     Indication: ATRIAL FIBRILLATION
     Dosage: 150 MG, TID
     Dates: end: 20130103
  16. RYTHMOL [Concomitant]
     Indication: ATRIAL FIBRILLATION
     Dosage: 225 MG, TID
     Route: 065
     Dates: start: 20130103
  17. MULTIVITAMIN [Concomitant]
     Indication: NUTRITIONAL SUPPLEMENTATION
     Dosage: 1 DF, QD
     Route: 065
  18. MULTIVITAMIN [Concomitant]
     Indication: ROUTINE HEALTH MAINTENANCE
  19. CALCIUM MAGNESIUM [Concomitant]
     Indication: NUTRITIONAL SUPPLEMENTATION
     Route: 065
  20. CALCIUM MAGNESIUM [Concomitant]
     Indication: ROUTINE HEALTH MAINTENANCE
  21. CALCIUM MAGNESIUM [Concomitant]
     Indication: NUTRITIONAL SUPPLEMENTATION
     Route: 065
  22. CALCIUM MAGNESIUM [Concomitant]
     Indication: NUTRITIONAL SUPPLEMENTATION
     Route: 065
  23. VITAMIN D [Concomitant]
     Indication: NUTRITIONAL SUPPLEMENTATION
     Dosage: 1000 IU, QD
     Route: 065
  24. VITAMIN D [Concomitant]
     Indication: ROUTINE HEALTH MAINTENANCE
  25. VITAMIN D [Concomitant]
     Indication: NUTRITIONAL SUPPLEMENTATION
  26. NORITATE [Concomitant]
     Indication: ROSACEA
     Dosage: 1 DF, QD
     Route: 065
  27. NORITATE [Concomitant]
     Indication: ROSACEA

REACTIONS (1)
  - Platelet count decreased [Not Recovered/Not Resolved]
